FAERS Safety Report 4698072-2 (Version None)
Quarter: 2005Q2

REPORT INFORMATION
  Report Type: 
  Country: None (occurrence: None)
  Receive Date: 20050622
  Receipt Date: 20050622
  Transmission Date: 20051028
  Serious: Yes (Other)
  Sender: FDA-Public Use
  Company Number: None

PATIENT
  Sex: Male
  Weight: 95 kg

DRUGS (7)
  1. OXALIPLATIN [Suspect]
     Indication: COLON CANCER
     Dosage: 85 MG/M2 IV DAY 1
     Route: 042
     Dates: start: 20050222
  2. LEUCOVORIN [Suspect]
     Dosage: 400 MKG/M2 IV DAY 1
     Route: 042
  3. FLUOROURACIL [Suspect]
     Dosage: 400 MG/M2 IV BOLUS DAY 1
     Route: 042
  4. IRON [Concomitant]
  5. M.V.I. [Concomitant]
  6. VIT E [Concomitant]
  7. ULASTA [Concomitant]

REACTIONS (1)
  - DUODENAL ULCER PERFORATION [None]
